FAERS Safety Report 16322606 (Version 2)
Quarter: 2020Q1

REPORT INFORMATION
  Report Type: Spontaneous
  Country: US (occurrence: US)
  Receive Date: 20190516
  Receipt Date: 20200218
  Transmission Date: 20200409
  Serious: Yes (Other)
  Sender: FDA-Public Use
  Company Number: US-GILEAD-2019-0404037

PATIENT
  Age: 80 Year
  Sex: Male
  Weight: 86.5 kg

DRUGS (1)
  1. YESCARTA [Suspect]
     Active Substance: AXICABTAGENE CILOLEUCEL
     Indication: DIFFUSE LARGE B-CELL LYMPHOMA
     Dosage: 68 MLS, ONCE
     Route: 042
     Dates: start: 20190422, end: 20190422

REACTIONS (4)
  - Product container issue [Recovered/Resolved]
  - Neurotoxicity [Not Recovered/Not Resolved]
  - Intentional underdose [Recovered/Resolved]
  - Cytokine release syndrome [Recovered/Resolved]

NARRATIVE: CASE EVENT DATE: 20190422
